FAERS Safety Report 9157432 (Version 1)
Quarter: 2013Q1

REPORT INFORMATION
  Report Type: Spontaneous
  Country: US (occurrence: None)
  Receive Date: 20130308
  Receipt Date: 20130308
  Transmission Date: 20140127
  Serious: Yes (Disabling)
  Sender: FDA-Public Use
  Company Number: None

PATIENT
  Age: 68 Year
  Sex: Female
  Weight: 90.72 kg

DRUGS (1)
  1. PHENTERMINE [Suspect]
     Indication: SPEECH DISORDER
     Dosage: DIDN^T GIVE ME B12 OR B6 SHOTS!!

REACTIONS (2)
  - Cerebrovascular accident [None]
  - Aphasia [None]
